FAERS Safety Report 25828391 (Version 2)
Quarter: 2025Q4

REPORT INFORMATION
  Report Type: Report from Study
  Country: EU (occurrence: EU)
  Receive Date: 20250921
  Receipt Date: 20251014
  Transmission Date: 20260117
  Serious: Yes (Other)
  Sender: ABBVIE
  Company Number: EU-ABBVIE-6467801

PATIENT
  Age: 78 Year
  Sex: Male

DRUGS (5)
  1. CARBIDOPA\LEVODOPA [Suspect]
     Active Substance: CARBIDOPA\LEVODOPA
     Indication: Parkinson^s disease
     Route: 050
     Dates: start: 20230828
  2. CARBIDOPA\LEVODOPA [Suspect]
     Active Substance: CARBIDOPA\LEVODOPA
     Dosage: CONTINUOUS DOSE REDUCTION OF 0.1.
     Route: 050
  3. CARBIDOPA\LEVODOPA [Suspect]
     Active Substance: CARBIDOPA\LEVODOPA
     Route: 050
     Dates: start: 20230901
  4. SYMMETREL [Concomitant]
     Active Substance: AMANTADINE HYDROCHLORIDE
     Indication: Parkinson^s disease
  5. PANTOPRAZOLE SODIUM [Concomitant]
     Active Substance: PANTOPRAZOLE SODIUM
     Indication: Product used for unknown indication

REACTIONS (11)
  - Cerebrovascular accident [Not Recovered/Not Resolved]
  - On and off phenomenon [Not Recovered/Not Resolved]
  - Dyskinesia [Not Recovered/Not Resolved]
  - Fatigue [Recovered/Resolved with Sequelae]
  - Muscle rigidity [Not Recovered/Not Resolved]
  - Bursitis [Not Recovered/Not Resolved]
  - Loss of personal independence in daily activities [Unknown]
  - Device issue [Unknown]
  - Dyskinesia [Recovering/Resolving]
  - Speech disorder [Recovered/Resolved with Sequelae]
  - Headache [Recovered/Resolved with Sequelae]

NARRATIVE: CASE EVENT DATE: 20250608
